FAERS Safety Report 22324813 (Version 1)
Quarter: 2023Q2

REPORT INFORMATION
  Report Type: Spontaneous
  Country: US (occurrence: None)
  Receive Date: 20230514
  Receipt Date: 20230514
  Transmission Date: 20230721
  Serious: Yes (Disabling)
  Sender: FDA-Public Use
  Company Number: None

PATIENT
  Age: 50 Year
  Sex: Female
  Weight: 97.65 kg

DRUGS (3)
  1. EOS THE FIXER HEAL REPAIR MEDICATED ANALGESIC LIP [Suspect]
     Active Substance: ALLANTOIN\CAMPHOR (NATURAL)\MENTHOL
     Indication: Lip dry
     Dosage: OTHER QUANTITY : 10 LIP BALM;?FREQUENCY : TWICE A DAY;?
     Route: 061
     Dates: start: 20230401, end: 20230512
  2. COSMETICS [Suspect]
     Active Substance: COSMETICS
     Indication: Lip dry
     Dosage: OTHER QUANTITY : 10 LIP BALM;?FREQUENCY : 3 TIMES A DAY;?
     Route: 061
     Dates: start: 20230401, end: 20230513
  3. Allegra (generic) [Concomitant]

REACTIONS (8)
  - Skin fissures [None]
  - Skin discolouration [None]
  - Lip discolouration [None]
  - Throat irritation [None]
  - Hypoaesthesia oral [None]
  - Oral pruritus [None]
  - Pain of skin [None]
  - Skin irritation [None]

NARRATIVE: CASE EVENT DATE: 20230512
